FAERS Safety Report 4648686-0 (Version None)
Quarter: 2005Q2

REPORT INFORMATION
  Report Type: 
  Country: None (occurrence: None)
  Receive Date: 20050429
  Receipt Date: 20050330
  Transmission Date: 20051028
  Serious: Yes (Death, Hospitalization, Congenital Anomaly)
  Sender: FDA-Public Use
  Company Number: PHBS2005JP04633

PATIENT
  Age: 0 Day
  Sex: 0

DRUGS (3)
  1. TEGRETOL [Suspect]
     Route: 064
  2. DEPAKENE [Suspect]
     Route: 064
  3. RIVOTRIL [Concomitant]
     Route: 064

REACTIONS (4)
  - DRUG EXPOSURE DURING PREGNANCY [None]
  - MENINGOCELE [None]
  - SPINA BIFIDA [None]
  - SUDDEN DEATH [None]
